FAERS Safety Report 9593981 (Version 2)
Quarter: 2013Q4

REPORT INFORMATION
  Report Type: Spontaneous
  Country: US (occurrence: US)
  Receive Date: 20131004
  Receipt Date: 20131009
  Transmission Date: 20140711
  Serious: No
  Sender: FDA-Public Use
  Company Number: US-ELI_LILLY_AND_COMPANY-US201310000894

PATIENT
  Age: 57 Year
  Sex: Male

DRUGS (3)
  1. CIALIS [Suspect]
     Indication: ERECTILE DYSFUNCTION
     Dosage: 5 MG, OTHER
     Dates: start: 201308
  2. CIALIS [Suspect]
     Dosage: 10 MG, WEEKLY (1/W)
     Dates: start: 20130927
  3. EPOETIN ALFA [Concomitant]
     Indication: BLOOD DISORDER

REACTIONS (3)
  - Blood testosterone decreased [Unknown]
  - Libido decreased [Unknown]
  - Drug ineffective [Unknown]
